FAERS Safety Report 14752537 (Version 1)
Quarter: 2018Q2

REPORT INFORMATION
  Report Type: Spontaneous
  Country: US (occurrence: US)
  Receive Date: 20180412
  Receipt Date: 20180412
  Transmission Date: 20180711
  Serious: Yes (Hospitalization)
  Sender: FDA-Public Use
  Company Number: US-JNJFOC-20180410085

PATIENT
  Age: 45 Year
  Sex: Male
  Weight: 111 kg

DRUGS (7)
  1. ACYCLOVIR. [Concomitant]
     Active Substance: ACYCLOVIR
  2. ALLOPURINOL. [Concomitant]
     Active Substance: ALLOPURINOL
  3. LORATADINE. [Concomitant]
     Active Substance: LORATADINE
  4. MULTIVITAMINS [Concomitant]
     Active Substance: VITAMINS
  5. HYDROCODONE [Concomitant]
     Active Substance: HYDROCODONE
  6. IMBRUVICA [Suspect]
     Active Substance: IBRUTINIB
     Indication: DIFFUSE LARGE B-CELL LYMPHOMA
     Route: 048
     Dates: start: 20170511, end: 2018
  7. BACTRIM DS [Concomitant]
     Active Substance: SULFAMETHOXAZOLE\TRIMETHOPRIM

REACTIONS (3)
  - Off label use [Unknown]
  - Product use in unapproved indication [Unknown]
  - Hospitalisation [Unknown]

NARRATIVE: CASE EVENT DATE: 20170511
